FAERS Safety Report 8797373 (Version 1)
Quarter: 2012Q4

REPORT INFORMATION
  Report Type: 
  Country: US (occurrence: US)
  Receive Date: 20120920
  Receipt Date: 20120920
  Transmission Date: 20130627
  Serious: No
  Sender: FDA-Public Use
  Company Number: US-PFIZER INC-2012232477

PATIENT
  Age: 22 Year
  Sex: Female
  Weight: 49.9 kg

DRUGS (5)
  1. ZOLOFT [Suspect]
     Indication: DEPRESSION
     Dosage: 150 mg, 1x/day
     Route: 048
     Dates: end: 201207
  2. ZOLOFT [Suspect]
     Dosage: 150 mg, 1x/day
     Route: 048
     Dates: start: 201208, end: 201209
  3. SERTRALINE HCL [Suspect]
     Indication: DEPRESSION
     Dosage: 150 mg, 1x/day
     Route: 048
     Dates: start: 201207, end: 201208
  4. SERTRALINE HCL [Suspect]
     Dosage: 150 mg, 1x/day
     Route: 048
     Dates: start: 201209, end: 20120918
  5. LOESTRIN 24 FE [Concomitant]
     Indication: CONTRACEPTION
     Dosage: UNK

REACTIONS (1)
  - Drug ineffective [Unknown]
